FAERS Safety Report 6960676-1 (Version None)
Quarter: 2010Q3

REPORT INFORMATION
  Report Type: 
  Country: None (occurrence: None)
  Receive Date: 20100901
  Receipt Date: 20100826
  Transmission Date: 20110219
  Serious: Yes (Life-Threatening, Hospitalization)
  Sender: FDA-Public Use
  Company Number: NL-ROCHE-641220

PATIENT
  Weight: 79 kg

DRUGS (16)
  1. CAPECITABINE [Suspect]
     Indication: GASTRIC CANCER
     Dosage: DOSE PER PROTOCOL. ORALLY IN 2 EQUALLY DIVIDED DOSES, 1000 MG/M2 BID, DAY 1-14 EVERY 3 WEEKS.
     Route: 048
     Dates: start: 20090119
  2. CAPECITABINE [Suspect]
     Dosage: DOSE RESUCED. DATE OF LAST DOSE OF CHEMOTHERAPY BEFORE EVENT: 10 FEBRUARY 2009.
     Route: 048
  3. CAPECITABINE [Suspect]
     Dosage: LAST DOSE PRIOR TO SAE:26-06-2009
     Route: 048
  4. CISPLATIN [Suspect]
     Indication: GASTRIC CANCER
     Route: 042
     Dates: start: 20090119
  5. CISPLATIN [Suspect]
     Dosage: DOSE REDUCED. DATE OF LAST DOSE OF CHEMOTHERAPY BEFORE EVENT: 10 FEBRUARY 2009.
     Route: 042
  6. CISPLATIN [Suspect]
     Dosage: LAST DOSE PRIOR TO SAE:26-06-2009
     Route: 042
  7. EPIRUBICIN [Suspect]
     Indication: GASTRIC CANCER
     Route: 042
     Dates: start: 20090119
  8. EPIRUBICIN [Suspect]
     Dosage: DOSE REDUCED. DATE OF LAST DOSE OF CHEMOTHERAPY BEFORE EVENT: 10 FEBRUARY 2009.
     Route: 042
  9. EPIRUBICIN [Suspect]
     Dosage: LAST DOSE PRIOR TO SAE:26-06-2009
     Route: 042
  10. PRIMPERAN TAB [Concomitant]
     Dosage: DOSE: 3 DD 10 MG.
     Route: 042
     Dates: start: 20090223
  11. TAZOCIN [Concomitant]
     Dosage: DOSE: 4-500 MG 4 DD
     Route: 042
     Dates: start: 20090223
  12. DALTEPARINE [Concomitant]
     Dosage: DOSE: 2-500 1 DD
     Route: 058
     Dates: start: 20090223
  13. NEXIUM [Concomitant]
     Dosage: DRUG NAME: NEXIUM 40 MG
  14. AUGMENTIN '125' [Concomitant]
     Dates: start: 20090721
  15. ACETAMINOPHEN [Concomitant]
     Dates: start: 20090721
  16. METOCLOPRAMIDE [Concomitant]
     Dates: start: 20090721

REACTIONS (3)
  - MALAISE [None]
  - PYREXIA [None]
  - RADIATION OESOPHAGITIS [None]
